FAERS Safety Report 18473271 (Version 3)
Quarter: 2021Q4

REPORT INFORMATION
  Report Type: Report from Study
  Country: US (occurrence: US)
  Receive Date: 20201106
  Receipt Date: 20211210
  Transmission Date: 20220303
  Serious: Yes (Death, Other)
  Sender: FDA-Public Use
  Company Number: US-ACADIA PHARMACEUTICALS INC.-ACA-2020-PIM-003369

PATIENT
  Sex: Male

DRUGS (10)
  1. NUPLAZID [Suspect]
     Active Substance: PIMAVANSERIN TARTRATE
     Indication: Parkinson^s disease
     Dosage: 20 MILLIGRAM EVERY OTHER DAY
     Route: 048
     Dates: start: 20181206, end: 20211116
  2. NUPLAZID [Suspect]
     Active Substance: PIMAVANSERIN TARTRATE
     Indication: Parkinson^s disease
     Dosage: 34 MILLIGRAM EVERY ALTERNATE DAY
     Route: 048
     Dates: start: 20181206
  3. NUPLAZID [Suspect]
     Active Substance: PIMAVANSERIN TARTRATE
     Dosage: 34 MILLIGRAM EVERY ALTERNATE DAY
     Route: 048
     Dates: start: 20181227
  4. NUPLAZID [Suspect]
     Active Substance: PIMAVANSERIN TARTRATE
     Dosage: 34 MILLIGRAM EVERY ALTERNATE DAY
     Route: 048
     Dates: start: 20200731
  5. NUPLAZID [Suspect]
     Active Substance: PIMAVANSERIN TARTRATE
     Dosage: 34 MILLIGRAM EVERY ALTERNATE DAY
     Route: 048
     Dates: start: 201909, end: 20211116
  6. CARBIDOPA\LEVODOPA [Concomitant]
     Active Substance: CARBIDOPA\LEVODOPA
     Dosage: 50/200
     Dates: start: 2011
  7. CARBIDOPA\LEVODOPA [Concomitant]
     Active Substance: CARBIDOPA\LEVODOPA
     Dosage: 25/100
     Dates: start: 2011
  8. SELEGILINE [Concomitant]
     Active Substance: SELEGILINE
     Dosage: 5 MG
     Dates: start: 2016
  9. DONEPEZIL [Concomitant]
     Active Substance: DONEPEZIL
     Dosage: 10 MG
     Dates: start: 202102
  10. MIDODRINE [Concomitant]
     Active Substance: MIDODRINE
     Dosage: 5 MG
     Dates: start: 202001

REACTIONS (2)
  - Parkinson^s disease [Recovered/Resolved]
  - Underdose [Unknown]
